FAERS Safety Report 24625492 (Version 1)
Quarter: 2024Q4

REPORT INFORMATION
  Report Type: Spontaneous
  Country: US (occurrence: None)
  Receive Date: 20241115
  Receipt Date: 20241115
  Transmission Date: 20250115
  Serious: Yes (Hospitalization)
  Sender: Public
  Company Number: None

PATIENT
  Age: 79 Year
  Sex: Male

DRUGS (1)
  1. VENCLEXTA [Suspect]
     Active Substance: VENETOCLAX
     Dates: start: 20240207, end: 20241115

REACTIONS (3)
  - Neutropenia [None]
  - Disease recurrence [None]
  - Therapy interrupted [None]

NARRATIVE: CASE EVENT DATE: 20241024
